FAERS Safety Report 14410628 (Version 3)
Quarter: 2018Q2

REPORT INFORMATION
  Report Type: Spontaneous
  Country: AT (occurrence: AT)
  Receive Date: 20180119
  Receipt Date: 20180507
  Transmission Date: 20180711
  Serious: Yes (Death)
  Sender: FDA-Public Use
  Company Number: AT-MYLANLABS-2018M1001816

PATIENT
  Age: 86 Year

DRUGS (1)
  1. HEPARIN [Suspect]
     Active Substance: HEPARIN SODIUM
     Indication: PRODUCT USED FOR UNKNOWN INDICATION
     Dosage: UNK
     Route: 065

REACTIONS (5)
  - Skin discolouration [Fatal]
  - Haematoma [Fatal]
  - Retroperitoneal haemorrhage [Fatal]
  - Multiple organ dysfunction syndrome [Fatal]
  - Ecchymosis [Fatal]
